FAERS Safety Report 13041069 (Version 1)
Quarter: 2016Q4

REPORT INFORMATION
  Report Type: Spontaneous
  Country: US (occurrence: US)
  Receive Date: 20161219
  Receipt Date: 20161219
  Transmission Date: 20170207
  Serious: No
  Sender: FDA-Public Use
  Company Number: US-PFIZER INC-2016576225

PATIENT
  Age: 66 Year
  Sex: Male
  Weight: 110.2 kg

DRUGS (1)
  1. FUROSEMIDE. [Suspect]
     Active Substance: FUROSEMIDE
     Indication: SWELLING
     Dosage: 60 MG, 1X/DAY (1.5 TABLETS ONCE A DAY)
     Dates: start: 2012

REACTIONS (1)
  - Weight decreased [Unknown]
